FAERS Safety Report 12871229 (Version 2)
Quarter: 2016Q4

REPORT INFORMATION
  Report Type: Report from Study
  Country: CN (occurrence: CN)
  Receive Date: 20161020
  Receipt Date: 20161215
  Transmission Date: 20170207
  Serious: Yes (Hospitalization, Other)
  Sender: FDA-Public Use
  Company Number: PHHO2014CN018691

PATIENT
  Age: 36 Year
  Sex: Female

DRUGS (13)
  1. POTASSIUM CHLORIDE. [Concomitant]
     Active Substance: POTASSIUM CHLORIDE
     Indication: PROPHYLAXIS
     Dosage: 0.5 MG, QD
     Route: 048
     Dates: start: 20141208
  2. CALCIUM CARBONATE. [Concomitant]
     Active Substance: CALCIUM CARBONATE
     Indication: CALCIUM DEFICIENCY
     Dosage: 600 MG, QD
     Route: 048
     Dates: start: 20141208, end: 20141213
  3. ROCALTROL [Concomitant]
     Active Substance: CALCITRIOL
     Indication: HYPOTHYROIDISM
     Dosage: 1 DF, QD
     Route: 048
     Dates: start: 20150131
  4. PREDNISONE. [Concomitant]
     Active Substance: PREDNISONE
     Dosage: 70 UNK, UNK
     Route: 065
     Dates: start: 20150105, end: 20150129
  5. ELTROMBOPAG [Suspect]
     Active Substance: ELTROMBOPAG
     Indication: IMMUNE THROMBOCYTOPENIC PURPURA
     Dosage: 50 MG, QD
     Route: 065
     Dates: start: 20140225, end: 20150129
  6. PREDNISONE. [Concomitant]
     Active Substance: PREDNISONE
     Dosage: 30 MG, BID
     Route: 065
     Dates: start: 20150103
  7. PREDNISONE. [Concomitant]
     Active Substance: PREDNISONE
     Indication: AUTOIMMUNE DISORDER
     Dosage: 5 MG, QD
     Route: 048
     Dates: start: 20141208
  8. PREDNISONE. [Concomitant]
     Active Substance: PREDNISONE
     Dosage: 50 UNK, UNK
     Route: 065
     Dates: start: 20150204
  9. NYSTATIN. [Concomitant]
     Active Substance: NYSTATIN
     Indication: GASTROINTESTINAL CANDIDIASIS
     Dosage: 1 G, TID
     Route: 048
     Dates: start: 20141208
  10. LEVOTHYROXINE. [Concomitant]
     Active Substance: LEVOTHYROXINE
     Indication: PRODUCT USED FOR UNKNOWN INDICATION
     Dosage: 50 MG, QD
     Route: 048
     Dates: start: 20141208, end: 20141213
  11. OMEPRAZOLE. [Concomitant]
     Active Substance: OMEPRAZOLE
     Indication: PROPHYLAXIS
     Dosage: 1 DF, QD
     Route: 048
     Dates: start: 20150131
  12. POTASSIUM CHLORIDE. [Concomitant]
     Active Substance: POTASSIUM CHLORIDE
     Dosage: 1 DF, QD
     Route: 048
     Dates: start: 20150131
  13. PREDNISONE. [Concomitant]
     Active Substance: PREDNISONE
     Dosage: 60 UNK, UNK
     Route: 065
     Dates: start: 20150130, end: 20150203

REACTIONS (1)
  - Systemic lupus erythematosus [Recovered/Resolved]

NARRATIVE: CASE EVENT DATE: 20141128
